FAERS Safety Report 4903726-6 (Version None)
Quarter: 2006Q1

REPORT INFORMATION
  Report Type: 
  Country: None (occurrence: None)
  Receive Date: 20060208
  Receipt Date: 20060110
  Transmission Date: 20060701
  Serious: Yes (Death)
  Sender: FDA-Public Use
  Company Number: HQWYE292011JAN06

PATIENT
  Sex: Male

DRUGS (22)
  1. ENBREL [Suspect]
     Indication: RHEUMATOID ARTHRITIS
     Route: 058
     Dates: start: 20050520, end: 20060106
  2. RITUXAN [Suspect]
     Dosage: DOSE AND FREQUENCY UNKNOWN
     Dates: start: 20051228, end: 20060101
  3. BETAMETHASONE [Concomitant]
     Indication: DRUG USE FOR UNKNOWN INDICATION
     Dates: end: 20060109
  4. RHEUMATREX [Concomitant]
     Dosage: DOSE AND FREQUENCY UNKNOWN
     Dates: start: 20050518, end: 20060109
  5. RHEUMATREX [Concomitant]
     Dosage: DOSE AND FREQUENCY UNKNOWN
     Route: 048
     Dates: end: 20060109
  6. SULFASALAZINE [Concomitant]
     Dosage: DOSE AND FREQUENCY UNKNOWN
     Dates: start: 20050722, end: 20060109
  7. TACROLIMUS [Concomitant]
     Dosage: DOSE AND FREQUENCY UNKNOWN
     Dates: start: 20050828, end: 20051011
  8. PREDNISOLONE [Concomitant]
     Dosage: DOSE AND FREQUENCY UNKNOWN
  9. VOLTAREN [Concomitant]
     Dosage: DOSE AND FREQUENCY UNKNOWN
     Dates: start: 20050720, end: 20060109
  10. DEXAMETHASONE [Concomitant]
     Dates: start: 20051031, end: 20060109
  11. FOLIAMIN [Concomitant]
     Dates: start: 20050520, end: 20060109
  12. OMEPRAZOLE [Concomitant]
     Dates: start: 20050706, end: 20060109
  13. GASTROM [Concomitant]
     Dates: start: 20050420, end: 20060109
  14. ETIZOLAM [Concomitant]
     Dates: start: 20050420, end: 20060108
  15. URSODEOXYCHOLIC ACID [Concomitant]
     Dates: start: 20050518, end: 20060109
  16. BASEN [Concomitant]
     Dates: start: 20050727, end: 20060109
  17. FOSAMAX [Concomitant]
     Dates: start: 20050914, end: 20060109
  18. SULFAMETHOXAZOLE + TRIMETHOPRIM [Concomitant]
     Dates: start: 20051003, end: 20060109
  19. AMLODIPINE BESYLATE [Concomitant]
     Dates: start: 20060108, end: 20060109
  20. CEFOTIAM HYDROCHLORIDE [Concomitant]
     Dates: start: 20050914, end: 20050915
  21. MINOCYCLINE HCL [Concomitant]
     Dates: start: 20050727, end: 20050830
  22. CEFOPERAZONE SODIUM [Concomitant]

REACTIONS (4)
  - CARDIAC TAMPONADE [None]
  - HERPES ZOSTER [None]
  - OXYGEN SATURATION DECREASED [None]
  - SUDDEN HEARING LOSS [None]
